FAERS Safety Report 11835433 (Version 1)
Quarter: 2015Q4

REPORT INFORMATION
  Report Type: Spontaneous
  Country: US (occurrence: None)
  Receive Date: 20151214
  Receipt Date: 20151214
  Transmission Date: 20160305
  Serious: No
  Sender: FDA-Public Use
  Company Number: None

PATIENT
  Age: 56 Year
  Sex: Female
  Weight: 92.53 kg

DRUGS (9)
  1. STOOL SOFTENER [Concomitant]
     Active Substance: DOCUSATE CALCIUM
  2. LYRICA [Concomitant]
     Active Substance: PREGABALIN
  3. HYDROCO APAP [Concomitant]
  4. CELEXIN [Concomitant]
  5. BACTRIM [Concomitant]
     Active Substance: SULFAMETHOXAZOLE\TRIMETHOPRIM
  6. VITAMIN D [Concomitant]
     Active Substance: CHOLECALCIFEROL
  7. TUMS [Concomitant]
     Active Substance: CALCIUM CARBONATE
  8. BACTRIM [Suspect]
     Active Substance: SULFAMETHOXAZOLE\TRIMETHOPRIM
     Indication: PERIPHERAL SWELLING
     Dosage: 800-160 MG. BY MOUTH
  9. BACTRIM [Suspect]
     Active Substance: SULFAMETHOXAZOLE\TRIMETHOPRIM
     Indication: FOOT OPERATION
     Dosage: 800-160 MG. BY MOUTH

REACTIONS (5)
  - Dyspepsia [None]
  - Influenza [None]
  - Headache [None]
  - Abdominal pain upper [None]
  - Rash [None]
